FAERS Safety Report 13598678 (Version 1)
Quarter: 2017Q2

REPORT INFORMATION
  Report Type: Spontaneous
  Country: US (occurrence: US)
  Receive Date: 20170531
  Receipt Date: 20170531
  Transmission Date: 20170830
  Serious: Yes (Hospitalization)
  Sender: FDA-Public Use
  Company Number: None

PATIENT
  Age: 57 Year
  Sex: Female

DRUGS (22)
  1. MICONAZOLE. [Concomitant]
     Active Substance: MICONAZOLE
  2. MILK OF MAGNESIA [Concomitant]
     Active Substance: MAGNESIUM HYDROXIDE
  3. NITROGLYCER [Concomitant]
  4. SIMVASTATIN. [Concomitant]
     Active Substance: SIMVASTATIN
  5. REBIF [Suspect]
     Active Substance: INTERFERON BETA-1A
     Indication: MULTIPLE SCLEROSIS
     Dosage: 44MCG 3 TIMES WEEKLY SQ
     Route: 058
     Dates: start: 20131010
  6. SENNA PLUS [Concomitant]
     Active Substance: DOCUSATE SODIUM\SENNOSIDES\SENNOSIDES A AND B
  7. BACTRIM DS [Concomitant]
     Active Substance: SULFAMETHOXAZOLE\TRIMETHOPRIM
  8. DELSYM [Concomitant]
     Active Substance: DEXTROMETHORPHAN
  9. NUEDEXTA [Concomitant]
     Active Substance: DEXTROMETHORPHAN HYDROBROMIDE\QUINIDINE SULFATE
  10. TYLENOL [Concomitant]
     Active Substance: ACETAMINOPHEN
  11. ATIVAN [Concomitant]
     Active Substance: LORAZEPAM
  12. DULCOLAX NOS [Concomitant]
     Active Substance: BISACODYL OR DOCUSATE SODIUM
  13. RANITIDINE. [Concomitant]
     Active Substance: RANITIDINE
  14. TIZANIDINE. [Concomitant]
     Active Substance: TIZANIDINE
  15. ZINC OXIDE. [Concomitant]
     Active Substance: ZINC OXIDE
  16. CIPROFLOXACN [Concomitant]
     Active Substance: CIPROFLOXACIN
  17. DEPAKOTE ER [Concomitant]
     Active Substance: DIVALPROEX SODIUM
  18. KEFLEX [Concomitant]
     Active Substance: CEPHALEXIN
  19. IBUPROFEN. [Concomitant]
     Active Substance: IBUPROFEN
  20. VANCOMYC/DEX [Concomitant]
  21. METOPROLOL TARTRATE. [Concomitant]
     Active Substance: METOPROLOL TARTRATE
  22. PAROXETINE. [Concomitant]
     Active Substance: PAROXETINE

REACTIONS (1)
  - Septic shock [None]

NARRATIVE: CASE EVENT DATE: 201705
